FAERS Safety Report 17569922 (Version 1)
Quarter: 2020Q1

REPORT INFORMATION
  Report Type: Spontaneous
  Country: US (occurrence: US)
  Receive Date: 20200323
  Receipt Date: 20200323
  Transmission Date: 20200409
  Serious: No
  Sender: FDA-Public Use
  Company Number: US-JNJFOC-20200235217

PATIENT
  Age: 85 Year
  Sex: Female
  Weight: 79.45 kg

DRUGS (1)
  1. PEPCID COMPLETE [Suspect]
     Active Substance: CALCIUM CARBONATE\FAMOTIDINE\MAGNESIUM HYDROXIDE
     Indication: GASTROOESOPHAGEAL REFLUX DISEASE
     Dosage: 2 CAPLETS PER DAY, LOST NUMBER INVALID: 30036523, LAST ADMIN DATE: 19/FEB/2020, ^2 CAPLETS A DAY TWI
     Route: 048
     Dates: start: 20200218

REACTIONS (1)
  - Drug ineffective [Unknown]

NARRATIVE: CASE EVENT DATE: 20200219
